FAERS Safety Report 22102438 (Version 9)
Quarter: 2024Q4

REPORT INFORMATION
  Report Type: Spontaneous
  Country: CA (occurrence: CA)
  Receive Date: 20230316
  Receipt Date: 20241016
  Transmission Date: 20250115
  Serious: Yes (Other)
  Sender: CELLTRION
  Company Number: CA-CELLTRION INC.-2022CA001292

PATIENT

DRUGS (22)
  1. INFLECTRA [Suspect]
     Active Substance: INFLIXIMAB-DYYB
     Indication: Crohn^s disease
     Dosage: 7.5 MG/KG, (400MG) Q 6 WEEKS, ROUNDED TO THE NEAREST HUNDRED
     Route: 042
     Dates: start: 20220225
  2. INFLECTRA [Suspect]
     Active Substance: INFLIXIMAB-DYYB
     Indication: Psoriatic arthropathy
     Dosage: 7.5 MG/KG (7.5MG/KG ROUNDED TO THE NEAREST HUNDRED ), EVERY 6 WEEKS-1DF
     Route: 042
     Dates: start: 20220225, end: 20230505
  3. INFLECTRA [Suspect]
     Active Substance: INFLIXIMAB-DYYB
     Dosage: 7.5 MG/KG, Q 6 WEEKS, ROUNDED TO THE NEAREST HUNDRED
     Route: 042
     Dates: start: 20220506
  4. INFLECTRA [Suspect]
     Active Substance: INFLIXIMAB-DYYB
     Dosage: 7.5 MG/KG, Q 6 WEEKS, ROUNDED TO THE NEAREST HUNDRED
     Route: 042
     Dates: start: 20220617
  5. INFLECTRA [Suspect]
     Active Substance: INFLIXIMAB-DYYB
     Dosage: 7.5 MG/KG, Q 6 WEEKS, ROUNDED TO THE NEAREST HUNDRED
     Route: 042
     Dates: start: 20220617
  6. INFLECTRA [Suspect]
     Active Substance: INFLIXIMAB-DYYB
     Dosage: 7.5 MG/KG, Q 6 WEEKS, ROUNDED TO THE NEAREST HUNDRED
     Route: 042
     Dates: start: 20220729
  7. INFLECTRA [Suspect]
     Active Substance: INFLIXIMAB-DYYB
     Dosage: 7.5 MG/KG, Q 6 WEEKS, ROUNDED TO THE NEAREST HUNDRED
     Route: 042
     Dates: start: 20220908
  8. INFLECTRA [Suspect]
     Active Substance: INFLIXIMAB-DYYB
     Dosage: 7.5 MG/KG EVERY 6 WEEKS
     Route: 042
     Dates: start: 20221031
  9. INFLECTRA [Suspect]
     Active Substance: INFLIXIMAB-DYYB
     Dosage: 7.5 MG/KG EVERY 6 WEEK (ROUNDED TO THE NEAREST HUNDRED)
     Route: 042
     Dates: start: 20230120
  10. INFLECTRA [Suspect]
     Active Substance: INFLIXIMAB-DYYB
     Dosage: 400 MG EVERY 7 WEEKS
     Route: 042
     Dates: start: 20230310, end: 20230505
  11. INFLECTRA [Suspect]
     Active Substance: INFLIXIMAB-DYYB
     Dosage: 500 MG AFTER 7 WEEKS + 4 DAYS AFTER LAST INFUSION (05MAY2023) (SUPPOSED TO BE Q6 WEEKS)
     Route: 042
     Dates: start: 20230627, end: 20240328
  12. INFLECTRA [Suspect]
     Active Substance: INFLIXIMAB-DYYB
     Dosage: 500 MG, AFTER 6 WEEK AND 3 DAYS
     Route: 042
     Dates: start: 20230811
  13. INFLECTRA [Suspect]
     Active Substance: INFLIXIMAB-DYYB
     Dosage: 500 MG, EVERY 6 WEEK
     Route: 042
     Dates: start: 20230922
  14. INFLECTRA [Suspect]
     Active Substance: INFLIXIMAB-DYYB
     Dosage: 500 MG, AFTER 8 WEEK AND 4 DAYS (PRESCRIBED EVERY 6 WEEKS)
     Route: 042
     Dates: start: 20231121
  15. INFLECTRA [Suspect]
     Active Substance: INFLIXIMAB-DYYB
     Dosage: 500 MG, EVERY 6 WEEKS
     Route: 042
     Dates: start: 20240105
  16. INFLECTRA [Suspect]
     Active Substance: INFLIXIMAB-DYYB
     Dosage: 500 MG, EVERY 4 WEEKS
     Route: 042
     Dates: start: 20240506, end: 20240506
  17. INFLECTRA [Suspect]
     Active Substance: INFLIXIMAB-DYYB
     Dosage: 500 MG, EVERY 5 WEEK (DISCONTINUED)
     Route: 042
     Dates: start: 20240617
  18. INFLECTRA [Suspect]
     Active Substance: INFLIXIMAB-DYYB
     Dosage: 500 MG, 7 WEEKS AND 3 DAYS (EVERY 5 WEEK) (DISCONTINUED)
     Route: 042
     Dates: start: 20240808
  19. CORTISONE [Concomitant]
     Active Substance: CORTISONE
     Dosage: X3 MONTHS
  20. CORTISONE [Concomitant]
     Active Substance: CORTISONE
     Dosage: 1 DF
     Route: 065
  21. METHOTREXATE [Concomitant]
     Active Substance: METHOTREXATE
     Dosage: 1 DF, WEEKLY
  22. MINOCYCLINE [Concomitant]
     Active Substance: MINOCYCLINE HYDROCHLORIDE
     Dosage: 100 MG, 1X/DAY (DISCONTINUED)
     Route: 048

REACTIONS (20)
  - Anal abscess [Not Recovered/Not Resolved]
  - Neurogenic shock [Unknown]
  - Dental caries [Unknown]
  - Drug level decreased [Not Recovered/Not Resolved]
  - Haemorrhoidal haemorrhage [Not Recovered/Not Resolved]
  - Acne [Not Recovered/Not Resolved]
  - Skin infection [Recovered/Resolved]
  - Skin plaque [Not Recovered/Not Resolved]
  - Skin disorder [Not Recovered/Not Resolved]
  - Anal fissure [Recovered/Resolved]
  - Abscess limb [Recovered/Resolved]
  - Condition aggravated [Recovered/Resolved]
  - Eye disorder [Not Recovered/Not Resolved]
  - Arthritis [Unknown]
  - Peripheral swelling [Not Recovered/Not Resolved]
  - Folliculitis [Unknown]
  - Off label use [Unknown]
  - Off label use [Unknown]
  - Intentional product use issue [Unknown]
  - Inappropriate schedule of product administration [Unknown]

NARRATIVE: CASE EVENT DATE: 20220101
